FAERS Safety Report 16362534 (Version 1)
Quarter: 2019Q2

REPORT INFORMATION
  Report Type: Spontaneous
  Country: GB (occurrence: GB)
  Receive Date: 20190528
  Receipt Date: 20190528
  Transmission Date: 20190711
  Serious: Yes (Death, Life-Threatening, Disabling, Other)
  Sender: FDA-Public Use
  Company Number: GB-MYLANLABS-2019M1049094

PATIENT
  Age: 88 Year
  Sex: Female
  Weight: 50 kg

DRUGS (14)
  1. RIVASTIGMINE. [Suspect]
     Active Substance: RIVASTIGMINE
     Indication: AMNESIA
     Dosage: 9 MILLIGRAM, QD
     Route: 048
     Dates: start: 20171201, end: 20180924
  2. ISOTARD XL [Concomitant]
     Dosage: 40 MILLIGRAM
  3. CO-CARELDOPA [Concomitant]
     Active Substance: CARBIDOPA\LEVODOPA
     Dosage: 50 MILLIGRAM
  4. CEFALEXIN [Concomitant]
     Active Substance: CEPHALEXIN
     Dosage: 5 MILLILITER
     Route: 048
  5. SELEGILINE [Concomitant]
     Active Substance: SELEGILINE
     Dosage: 10 MILLIGRAM
  6. PRAVASTATIN. [Concomitant]
     Active Substance: PRAVASTATIN
     Dosage: 40 MILLIGRAM
  7. LEVOTHYROXINE. [Concomitant]
     Active Substance: LEVOTHYROXINE
     Dosage: 100 MICROGRAM
  8. PREGABALIN. [Concomitant]
     Active Substance: PREGABALIN
     Dosage: 75 MILLIGRAM
  9. FUROSEMIDE. [Concomitant]
     Active Substance: FUROSEMIDE
     Dosage: 20 MILLIGRAM
  10. CYANOCOBALAMIN. [Concomitant]
     Active Substance: CYANOCOBALAMIN
     Dosage: 1 MILLIGRAM
  11. LANSOPRAZOLE. [Concomitant]
     Active Substance: LANSOPRAZOLE
     Dosage: 30 MILLIGRAM
  12. ACETYLSALICYLIC ACID [Concomitant]
     Active Substance: ASPIRIN
     Dosage: 75 MILLIGRAM
  13. NITROFURANTOIN. [Concomitant]
     Active Substance: NITROFURANTOIN
     Dosage: 50 MILLIGRAM
  14. FEXOFENADINE [Concomitant]
     Active Substance: FEXOFENADINE\FEXOFENADINE HYDROCHLORIDE
     Dosage: 180 MILLIGRAM

REACTIONS (2)
  - Soft tissue mass [Unknown]
  - Non-Hodgkin^s lymphoma [Fatal]

NARRATIVE: CASE EVENT DATE: 20180201
